FAERS Safety Report 15598451 (Version 1)
Quarter: 2018Q4

REPORT INFORMATION
  Report Type: Spontaneous
  Country: US (occurrence: US)
  Receive Date: 20181108
  Receipt Date: 20181108
  Transmission Date: 20190205
  Serious: No
  Sender: FDA-Public Use
  Company Number: US-PFIZER INC-2018446792

PATIENT
  Age: 61 Year
  Sex: Male
  Weight: 92.99 kg

DRUGS (1)
  1. CHANTIX [Suspect]
     Active Substance: VARENICLINE TARTRATE
     Indication: SMOKING CESSATION THERAPY
     Dosage: 0.5 MG, UNK

REACTIONS (4)
  - Drug ineffective [Unknown]
  - Anger [Unknown]
  - Crying [Unknown]
  - Product dispensing error [Unknown]
